FAERS Safety Report 24689066 (Version 4)
Quarter: 2025Q3

REPORT INFORMATION
  Report Type: Report from Study
  Country: US (occurrence: US)
  Receive Date: 20241203
  Receipt Date: 20250803
  Transmission Date: 20251020
  Serious: Yes (Other)
  Sender: ALEXION PHARMACEUTICALS
  Company Number: US-AstraZeneca-CH-00757509A

PATIENT
  Sex: Female

DRUGS (31)
  1. TEZEPELUMAB [Suspect]
     Active Substance: TEZEPELUMAB
     Route: 065
  2. TEZEPELUMAB [Suspect]
     Active Substance: TEZEPELUMAB
  3. TYLENOL [Concomitant]
     Active Substance: ACETAMINOPHEN
     Indication: Pain
     Dosage: 325 MILLIGRAM, EVERY 4-6 HOURS
  4. ALBUTEROL [Concomitant]
     Active Substance: ALBUTEROL
     Indication: Wheezing
  5. VENTOLIN HFA [Concomitant]
     Active Substance: ALBUTEROL SULFATE
     Indication: Wheezing
  6. AIRSUPRA [Concomitant]
     Active Substance: ALBUTEROL SULFATE\BUDESONIDE
     Indication: Wheezing
  7. AIRSUPRA [Concomitant]
     Active Substance: ALBUTEROL SULFATE\BUDESONIDE
     Indication: Dyspnoea
  8. AUGMENTIN [Concomitant]
     Active Substance: AMOXICILLIN\CLAVULANATE POTASSIUM
     Dosage: 1 DOSAGE FORM, BID
  9. LIPITOR [Concomitant]
     Active Substance: ATORVASTATIN CALCIUM
     Dosage: 1 DOSAGE FORM, QD
  10. ASTELIN [Concomitant]
     Active Substance: AZELASTINE HYDROCHLORIDE
  11. DIPROLENE [Concomitant]
     Active Substance: BETAMETHASONE DIPROPIONATE
  12. CELEBREX [Concomitant]
     Active Substance: CELECOXIB
     Dosage: 1 DOSAGE FORM, BID
  13. FLEXERIL [Concomitant]
     Active Substance: CYCLOBENZAPRINE HYDROCHLORIDE
     Indication: Muscle spasms
     Dosage: 1 DOSAGE FORM, BID
  14. DUPIXENT [Concomitant]
     Active Substance: DUPILUMAB
  15. EPIPEN [Concomitant]
     Active Substance: EPINEPHRINE
     Indication: Anaphylactic reaction
  16. ALLEGRA [Concomitant]
     Active Substance: FEXOFENADINE HYDROCHLORIDE
  17. TRELEGY ELLIPTA [Concomitant]
     Active Substance: FLUTICASONE FUROATE\UMECLIDINIUM BROMIDE\VILANTEROL TRIFENATATE
  18. NEURONTIN [Concomitant]
     Active Substance: GABAPENTIN
  19. HYDROCORTISONE [Concomitant]
     Active Substance: HYDROCORTISONE
  20. ATARAX [Concomitant]
     Active Substance: HYDROXYZINE HYDROCHLORIDE
     Indication: Pruritus
     Dosage: 1 DOSAGE FORM, TID
  21. LINZESS [Concomitant]
     Active Substance: LINACLOTIDE
     Dosage: 1 DOSAGE FORM, QD
  22. MEDROL [Concomitant]
     Active Substance: METHYLPREDNISOLONE
  23. NICOTINE [Concomitant]
     Active Substance: NICOTINE
     Indication: Nicotine dependence
  24. MYCOSTATIN [Concomitant]
     Active Substance: NYSTATIN
  25. MYCOSTATIN [Concomitant]
     Active Substance: NYSTATIN
  26. MYCOSTATIN [Concomitant]
     Active Substance: NYSTATIN
  27. MYCOSTATIN [Concomitant]
     Active Substance: NYSTATIN
  28. PRILOSEC [Concomitant]
     Active Substance: OMEPRAZOLE MAGNESIUM
     Dosage: 1 DOSAGE FORM, BID
  29. DELTASONE [Concomitant]
     Active Substance: PREDNISONE
     Dosage: 4 DOSAGE FORM, QD, FOR 5 DAYS
  30. SUDAFED [Concomitant]
     Active Substance: PSEUDOEPHEDRINE HYDROCHLORIDE
     Dosage: 1 DOSAGE FORM, BID
  31. CHANTIX [Concomitant]
     Active Substance: VARENICLINE TARTRATE

REACTIONS (10)
  - Aortic arteriosclerosis [Unknown]
  - Chronic respiratory failure [Unknown]
  - Cardiomegaly [Unknown]
  - Hypoxia [Unknown]
  - Wheezing [Unknown]
  - Cough [Unknown]
  - Dyspnoea exertional [Unknown]
  - Nasal congestion [Unknown]
  - Nasal dryness [Unknown]
  - Epistaxis [Unknown]
